FAERS Safety Report 5502242-0 (Version None)
Quarter: 2007Q4

REPORT INFORMATION
  Report Type: 
  Country: None (occurrence: None)
  Receive Date: 20071030
  Receipt Date: 20071019
  Transmission Date: 20080405
  Serious: Yes (Other)
  Sender: FDA-Public Use
  Company Number: US-ELI_LILLY_AND_COMPANY-US200710004992

PATIENT
  Sex: Female

DRUGS (2)
  1. HUMALOG [Suspect]
     Dosage: UNK, 3/D
     Dates: start: 19980101
  2. LANTUS [Concomitant]
     Dosage: 15 U, EACH MORNING

REACTIONS (3)
  - BLINDNESS UNILATERAL [None]
  - DIPLOPIA [None]
  - GLAUCOMA [None]
